FAERS Safety Report 24915108 (Version 1)
Quarter: 2025Q1

REPORT INFORMATION
  Report Type: Other
  Country: TW (occurrence: TW)
  Receive Date: 20250203
  Receipt Date: 20250203
  Transmission Date: 20250409
  Serious: Yes (Other)
  Sender: ANI
  Company Number: TW-ANIPHARMA-015503

PATIENT
  Age: 51 Year
  Sex: Female

DRUGS (6)
  1. LEUCOVORIN CALCIUM [Suspect]
     Active Substance: LEUCOVORIN CALCIUM
     Indication: Gastric cancer recurrent
  2. TRASTUZUMAB [Concomitant]
     Active Substance: TRASTUZUMAB
     Indication: Gastric cancer recurrent
  3. CISPLATIN [Concomitant]
     Active Substance: CISPLATIN
     Indication: Gastric cancer recurrent
  4. FLUOROURACIL [Concomitant]
     Active Substance: FLUOROURACIL
     Indication: Gastric cancer recurrent
  5. HYDROXYCHLOROQUINE [Concomitant]
     Active Substance: HYDROXYCHLOROQUINE
     Indication: Paraneoplastic syndrome
  6. METHYLPREDNISOLONE [Concomitant]
     Active Substance: METHYLPREDNISOLONE
     Indication: Paraneoplastic syndrome

REACTIONS (1)
  - Neutropenia [Unknown]
